FAERS Safety Report 5804162-0 (Version None)
Quarter: 2008Q3

REPORT INFORMATION
  Report Type: 
  Country: None (occurrence: None)
  Receive Date: 20080702
  Receipt Date: 20070807
  Transmission Date: 20090109
  Serious: Yes (Hospitalization)
  Sender: FDA-Public Use
  Company Number: HQWYE470709AUG07

PATIENT

DRUGS (1)
  1. IBUPROFEN TABLETS [Suspect]
     Dosage: ORAL
     Route: 048

REACTIONS (1)
  - HYPERSENSITIVITY [None]
